FAERS Safety Report 12294180 (Version 1)
Quarter: 2016Q2

REPORT INFORMATION
  Report Type: Spontaneous
  Country: US (occurrence: US)
  Receive Date: 20160422
  Receipt Date: 20160422
  Transmission Date: 20160815
  Serious: Yes (Other)
  Sender: FDA-Public Use
  Company Number: US-BEH-2016060897

PATIENT
  Sex: Female
  Weight: 62 kg

DRUGS (14)
  1. HIZENTRA [Suspect]
     Active Substance: HUMAN IMMUNOGLOBULIN G
     Indication: IMMUNODEFICIENCY
     Route: 058
  2. ATIVAN [Concomitant]
     Active Substance: LORAZEPAM
  3. VITAMIN D3 [Concomitant]
     Active Substance: CHOLECALCIFEROL
  4. LMX [Concomitant]
     Active Substance: LIDOCAINE
  5. ARMOUR THYROID [Concomitant]
     Active Substance: THYROID, PORCINE
  6. POTASSIUM CHLORIDE. [Concomitant]
     Active Substance: POTASSIUM CHLORIDE
  7. MAGNESIUM [Concomitant]
     Active Substance: MAGNESIUM
  8. EPIPEN [Concomitant]
     Active Substance: EPINEPHRINE
  9. BIOTIN [Concomitant]
     Active Substance: BIOTIN
  10. ATENOLOL. [Concomitant]
     Active Substance: ATENOLOL
  11. RANITIDINE. [Concomitant]
     Active Substance: RANITIDINE
  12. ACETAMINOPHEN. [Concomitant]
     Active Substance: ACETAMINOPHEN
  13. PROBIOTIC [Concomitant]
     Active Substance: PROBIOTICS NOS
  14. CLARITIN [Concomitant]
     Active Substance: LORATADINE

REACTIONS (3)
  - Meningitis [Unknown]
  - Headache [Unknown]
  - Drug tolerance decreased [Unknown]
